FAERS Safety Report 18324521 (Version 2)
Quarter: 2020Q3

REPORT INFORMATION
  Report Type: Report from Study
  Country: IT (occurrence: IT)
  Receive Date: 20200929
  Receipt Date: 20200930
  Transmission Date: 20201103
  Serious: Yes (Death)
  Sender: FDA-Public Use
  Company Number: IT-PFIZER INC-2020369952

PATIENT

DRUGS (8)
  1. ETOPOSIDE. [Concomitant]
     Active Substance: ETOPOSIDE
     Indication: OSTEOSARCOMA METASTATIC
     Dosage: 120 MG/M2, CYCLIC (PER DAY IN A 1?H INFUSION FOR 3 DAYS)
  2. MESNA. [Concomitant]
     Active Substance: MESNA
     Indication: OSTEOSARCOMA METASTATIC
     Dosage: UNK, CYCLIC
  3. DOXORUBICIN HCL [Suspect]
     Active Substance: DOXORUBICIN HYDROCHLORIDE
     Dosage: 45 MG/M2, CYCLIC (PER DAY I.V. FOR 2 CONSECUTIVE DAYS IN 4?H INFUSION)
     Route: 042
  4. METHOTREXATE. [Concomitant]
     Active Substance: METHOTREXATE
     Indication: OSTEOSARCOMA METASTATIC
     Dosage: UNK, CYCLIC (8 G/M^2 OVER 6 H)
     Route: 042
  5. CITROVORUM FACTOR [Concomitant]
     Active Substance: LEUCOVORIN
     Indication: OSTEOSARCOMA METASTATIC
  6. CISPLATIN. [Concomitant]
     Active Substance: CISPLATIN
     Indication: OSTEOSARCOMA METASTATIC
     Dosage: 120 MG/M2, CYCLIC (CONTINUOUS INFUSION OF 72 H)
     Route: 013
  7. DOXORUBICIN HCL [Suspect]
     Active Substance: DOXORUBICIN HYDROCHLORIDE
     Indication: OSTEOSARCOMA METASTATIC
     Dosage: 60 MG/M2, CYCLIC (OVER 8 H AND WAS STARTED 48 H AFTER THE BEGINNING OF CDP INFUSION)
     Route: 042
  8. IFOSFAMIDE. [Concomitant]
     Active Substance: IFOSFAMIDE
     Indication: OSTEOSARCOMA METASTATIC
     Dosage: UNK, CYCLIC (2 G/M^2 PER DAY, FOR 5 CONSECUTIVE DAYS IN 90 MIN)
     Route: 042

REACTIONS (1)
  - Cardiotoxicity [Fatal]
